FAERS Safety Report 15197162 (Version 1)
Quarter: 2018Q3

REPORT INFORMATION
  Report Type: Spontaneous
  Country: DE (occurrence: DE)
  Receive Date: 20180725
  Receipt Date: 20180725
  Transmission Date: 20181010
  Serious: Yes (Hospitalization)
  Sender: FDA-Public Use
  Company Number: PHHY2018DE049010

PATIENT
  Age: 68 Year
  Sex: Female
  Weight: 58 kg

DRUGS (7)
  1. IRBESARTAN HORMOSAN [Concomitant]
     Indication: PRODUCT USED FOR UNKNOWN INDICATION
     Dosage: 300 MG, QD (1?0?0?0)
     Route: 048
  2. ALLOPURINOL ^HEUMANN^ [Concomitant]
     Indication: PRODUCT USED FOR UNKNOWN INDICATION
     Dosage: 300 MG, QD (0?0.5?0?0)
     Route: 048
  3. SANDIMMUN?OPTORAL [Suspect]
     Active Substance: CYCLOSPORINE
     Indication: RENAL TRANSPLANT
     Dosage: 40 MG, BID (4?0?4?0)
     Route: 048
  4. FUROSEMID RATIOPHARM [Concomitant]
     Indication: PRODUCT USED FOR UNKNOWN INDICATION
     Dosage: 40 MG, BID (1?1?0?0)
     Route: 048
  5. VERAHEXAL [Concomitant]
     Active Substance: VERAPAMIL HYDROCHLORIDE
     Indication: PRODUCT USED FOR UNKNOWN INDICATION
     Dosage: 120 MG, BID (1?0?1?0)
     Route: 048
  6. PRAVASTATIN. [Concomitant]
     Active Substance: PRAVASTATIN
     Indication: PRODUCT USED FOR UNKNOWN INDICATION
     Dosage: 20 MG, QD
     Route: 048
  7. CLONIDIN?RATIOPHARM [Concomitant]
     Indication: PRODUCT USED FOR UNKNOWN INDICATION
     Dosage: 0.075 MG, QD (0?0?1?0)
     Route: 048

REACTIONS (5)
  - Chest pain [Unknown]
  - Pyrexia [Unknown]
  - Pneumonia [Unknown]
  - Productive cough [Unknown]
  - Cough [Unknown]
